FAERS Safety Report 5475584-5 (Version None)
Quarter: 2007Q4

REPORT INFORMATION
  Report Type: 
  Country: None (occurrence: None)
  Receive Date: 20071003
  Receipt Date: 20061205
  Transmission Date: 20080405
  Serious: No
  Sender: FDA-Public Use
  Company Number: US-KINGPHARMUSA00001-K200601549

PATIENT

DRUGS (8)
  1. SONATA [Suspect]
     Dosage: UNK, UNK
  2. BENADRYL [Concomitant]
  3. ASPIRIN [Concomitant]
     Dosage: 81 MG, UNK
  4. VITAMIN B6 [Concomitant]
     Dosage: 100 MG, UNK
  5. LEVOTHYROXINE SODIUM [Concomitant]
     Dosage: .088 MG, UNK
  6. VITAMIN CAP [Concomitant]
  7. OCUVITE                            /01053801/ [Concomitant]
     Dosage: UNK, BID
  8. LIPITOR [Concomitant]
     Dosage: 10 MG, QD IN PM

REACTIONS (1)
  - MIDDLE INSOMNIA [None]
